FAERS Safety Report 4327858-9 (Version None)
Quarter: 2004Q1

REPORT INFORMATION
  Report Type: 
  Country: None (occurrence: None)
  Receive Date: 20040325
  Receipt Date: 20040309
  Transmission Date: 20041129
  Serious: Yes (Hospitalization)
  Sender: FDA-Public Use
  Company Number: AU-JNJFOC-20040304279

PATIENT
  Age: 92 Year
  Sex: Female

DRUGS (6)
  1. TRAMADOL HCL [Suspect]
     Dosage: 50 MG, 1 IN 1 DAY, ORAL
     Route: 048
  2. ZOLOFT [Suspect]
     Dosage: 50 MG, ORAL
     Route: 048
  3. MULTIVITAMIN (MULTIVITAMINS) [Concomitant]
  4. METOPROLOL (METOPROLOL) [Concomitant]
  5. LIPITOR [Concomitant]
  6. CALCIPARINE [Concomitant]

REACTIONS (4)
  - CONFUSIONAL STATE [None]
  - DISORIENTATION [None]
  - DRUG INTERACTION [None]
  - HALLUCINATION [None]
